FAERS Safety Report 22029557 (Version 8)
Quarter: 2025Q1

REPORT INFORMATION
  Report Type: Spontaneous
  Country: US (occurrence: US)
  Receive Date: 20230223
  Receipt Date: 20250226
  Transmission Date: 20250409
  Serious: No
  Sender: PFIZER
  Company Number: US-PFIZER INC-202101798425

PATIENT
  Age: 76 Year
  Sex: Female
  Weight: 81.633 kg

DRUGS (2)
  1. IBRANCE [Suspect]
     Active Substance: PALBOCICLIB
     Indication: Breast cancer female
     Dates: start: 20210913
  2. LETROZOLE [Concomitant]
     Active Substance: LETROZOLE
     Dates: start: 20210913

REACTIONS (5)
  - Hypersensitivity [Unknown]
  - Feeling abnormal [Unknown]
  - Neoplasm progression [Unknown]
  - Illness [Unknown]
  - Skin lesion [Unknown]
